FAERS Safety Report 12534001 (Version 1)
Quarter: 2016Q3

REPORT INFORMATION
  Report Type: Spontaneous
  Country: US (occurrence: US)
  Receive Date: 20160706
  Receipt Date: 20160706
  Transmission Date: 20161109
  Serious: Yes (Other)
  Sender: FDA-Public Use
  Company Number: US-TEVA-673688USA

PATIENT
  Age: 58 Year
  Sex: Male
  Weight: 61.1 kg

DRUGS (6)
  1. ACYCLOVIR. [Concomitant]
     Active Substance: ACYCLOVIR
  2. STIBILD [Concomitant]
  3. OXYCODONE [Concomitant]
     Active Substance: OXYCODONE
  4. ADVIL [Concomitant]
     Active Substance: IBUPROFEN
  5. LORAZEPAM. [Concomitant]
     Active Substance: LORAZEPAM
  6. SYNRIBO [Suspect]
     Active Substance: OMACETAXINE MEPESUCCINATE
     Indication: CHRONIC MYELOID LEUKAEMIA
     Dosage: HOME ADMINISTRATION
     Dates: start: 20160603

REACTIONS (1)
  - Febrile neutropenia [Not Recovered/Not Resolved]

NARRATIVE: CASE EVENT DATE: 20160629
